FAERS Safety Report 8439031-3 (Version None)
Quarter: 2012Q2

REPORT INFORMATION
  Report Type: 
  Country: None (occurrence: None)
  Receive Date: 20120615
  Receipt Date: 20120605
  Transmission Date: 20120825
  Serious: Yes (Other)
  Sender: FDA-Public Use
  Company Number: US-JNJFOC-20120605740

PATIENT

DRUGS (4)
  1. MITOMYCIN [Suspect]
     Indication: PERITONEAL MESOTHELIOMA MALIGNANT
     Route: 065
  2. DOXORUBICIN HCL [Suspect]
     Indication: PSEUDOMYXOMA PERITONEI
     Route: 065
  3. DOXORUBICIN HCL [Suspect]
     Indication: PERITONEAL MESOTHELIOMA MALIGNANT
     Route: 065
  4. MITOMYCIN [Suspect]
     Indication: PSEUDOMYXOMA PERITONEI
     Route: 065

REACTIONS (11)
  - NEUTROPENIA [None]
  - PLEURAL EFFUSION [None]
  - POST PROCEDURAL HAEMORRHAGE [None]
  - PNEUMONIA [None]
  - INCORRECT ROUTE OF DRUG ADMINISTRATION [None]
  - URINARY TRACT INFECTION [None]
  - ANAEMIA [None]
  - WHITE BLOOD CELL COUNT DECREASED [None]
  - OFF LABEL USE [None]
  - DEVICE RELATED SEPSIS [None]
  - VENOUS THROMBOSIS [None]
